FAERS Safety Report 17239545 (Version 2)
Quarter: 2020Q2

REPORT INFORMATION
  Report Type: Spontaneous
  Country: US (occurrence: AE)
  Receive Date: 20200106
  Receipt Date: 20200520
  Transmission Date: 20200713
  Serious: No
  Sender: FDA-Public Use
  Company Number: US-LUNDBECK-DKLU3009103

PATIENT
  Age: 76 Year
  Sex: Male

DRUGS (4)
  1. NORTHERA [Suspect]
     Active Substance: DROXIDOPA
     Route: 048
     Dates: start: 20190803
  2. NORTHERA [Suspect]
     Active Substance: DROXIDOPA
     Indication: NERVE DEGENERATION
     Route: 048
     Dates: start: 20190803
  3. NORTHERA [Suspect]
     Active Substance: DROXIDOPA
     Route: 048
     Dates: start: 20190803
  4. XOLAIR [Concomitant]
     Active Substance: OMALIZUMAB
     Indication: PRODUCT USED FOR UNKNOWN INDICATION
     Route: 065

REACTIONS (2)
  - Flushing [Unknown]
  - Hypertension [Unknown]
